FAERS Safety Report 10705638 (Version 1)
Quarter: 2015Q1

REPORT INFORMATION
  Report Type: Spontaneous
  Country: US (occurrence: US)
  Receive Date: 20150112
  Receipt Date: 20150112
  Transmission Date: 20150721
  Serious: No
  Sender: FDA-Public Use
  Company Number: US-GLAXOSMITHKLINE-A1085224A

PATIENT

DRUGS (11)
  1. LYRICA [Concomitant]
     Active Substance: PREGABALIN
  2. BARACLUDE [Suspect]
     Active Substance: ENTECAVIR
     Indication: PRODUCT USED FOR UNKNOWN INDICATION
     Route: 048
  3. PHENERGAN [Suspect]
     Active Substance: PROMETHAZINE HYDROCHLORIDE
     Indication: NAUSEA
     Route: 048
  4. ZOFRAN [Suspect]
     Active Substance: ONDANSETRON HYDROCHLORIDE
     Indication: PRODUCT USED FOR UNKNOWN INDICATION
     Route: 048
  5. SOVALDI [Concomitant]
     Active Substance: SOFOSBUVIR
  6. PROMACTA [Suspect]
     Active Substance: ELTROMBOPAG OLAMINE
     Indication: PLATELET COUNT DECREASED
     Route: 048
  7. GABAPENTIN CAPSULE [Suspect]
     Active Substance: GABAPENTIN
     Indication: PRODUCT USED FOR UNKNOWN INDICATION
     Route: 048
  8. NORCO [Concomitant]
     Active Substance: ACETAMINOPHEN\HYDROCODONE BITARTRATE
  9. PEGASYS [Concomitant]
     Active Substance: PEGINTERFERON ALFA-2A
  10. RIBAVIRIN. [Concomitant]
     Active Substance: RIBAVIRIN
  11. PHENERGAN [Suspect]
     Active Substance: PROMETHAZINE HYDROCHLORIDE
     Indication: VOMITING

REACTIONS (15)
  - Fatigue [Unknown]
  - Influenza like illness [Unknown]
  - White blood cell count decreased [Unknown]
  - Adverse drug reaction [Unknown]
  - Abdominal pain upper [Unknown]
  - Depression [Unknown]
  - Disturbance in attention [Unknown]
  - Dizziness [Unknown]
  - Weight decreased [Unknown]
  - Arthralgia [Recovering/Resolving]
  - Insomnia [Unknown]
  - Decreased appetite [Unknown]
  - Myalgia [Recovering/Resolving]
  - Nausea [Recovering/Resolving]
  - Mood swings [Unknown]

NARRATIVE: CASE EVENT DATE: 20140709
